FAERS Safety Report 8352490-X (Version None)
Quarter: 2012Q2

REPORT INFORMATION
  Report Type: 
  Country: None (occurrence: None)
  Receive Date: 20120511
  Receipt Date: 20120507
  Transmission Date: 20120825
  Serious: Yes (Hospitalization)
  Sender: FDA-Public Use
  Company Number: PHHY2012AR039534

PATIENT
  Sex: Male

DRUGS (4)
  1. FUROSEMIDE [Concomitant]
     Dosage: UNK UKN, UNK
  2. NEBIVOLOL [Concomitant]
     Dosage: UNK UKN, UNK
  3. DIOVAN [Suspect]
     Indication: HYPERTENSION
     Dosage: 2 TABLETS (80 MG) DAILY
     Dates: start: 20120301
  4. CARVEDILOL [Concomitant]
     Dosage: UNK UKN, UNK

REACTIONS (3)
  - PULMONARY OEDEMA [None]
  - FLUID RETENTION [None]
  - BRONCHOSPASM [None]
